FAERS Safety Report 8157142-7 (Version None)
Quarter: 2012Q1

REPORT INFORMATION
  Report Type: 
  Country: None (occurrence: None)
  Receive Date: 20120222
  Receipt Date: 20120213
  Transmission Date: 20120608
  Serious: Yes (Hospitalization)
  Sender: FDA-Public Use
  Company Number: US-BAYER-2011-040639

PATIENT
  Age: 28 Year
  Sex: Female
  Weight: 95 kg

DRUGS (3)
  1. DROSPIRENONE AND ETHINYL ESTRADIOL [Suspect]
     Indication: CONTRACEPTION
     Dosage: UNK
     Dates: start: 20090401, end: 20090501
  2. CORTISONE ACETATE [Concomitant]
  3. IBUPROFEN (ADVIL) [Concomitant]
     Indication: ARTHRALGIA

REACTIONS (15)
  - PALPITATIONS [None]
  - DYSPNOEA [None]
  - WHEEZING [None]
  - EMOTIONAL DISTRESS [None]
  - PAIN [None]
  - DIZZINESS [None]
  - DEEP VEIN THROMBOSIS [None]
  - DEPRESSION [None]
  - FATIGUE [None]
  - DISORIENTATION [None]
  - ANXIETY [None]
  - PULMONARY EMBOLISM [None]
  - HEART RATE INCREASED [None]
  - BLOOD PRESSURE INCREASED [None]
  - FEAR [None]
